FAERS Safety Report 9075268 (Version 2)
Quarter: 2013Q2

REPORT INFORMATION
  Report Type: Spontaneous
  Country: CL (occurrence: CL)
  Receive Date: 20130129
  Receipt Date: 20130527
  Transmission Date: 20140414
  Serious: Yes (Other)
  Sender: FDA-Public Use
  Company Number: CL-BRISTOL-MYERS SQUIBB COMPANY-16624215

PATIENT
  Age: 57 Year
  Sex: Female

DRUGS (7)
  1. ORENCIA [Suspect]
     Indication: PSORIATIC ARTHROPATHY
     Dosage: FROM 15JAN2013 ALSO
     Dates: start: 200908
  2. LOPERAMIDE [Concomitant]
  3. EUTIROX [Concomitant]
  4. METHOTREXATE [Concomitant]
  5. CALCIUM [Concomitant]
  6. VENLAFAXINE HCL [Concomitant]
  7. LERTUS [Concomitant]

REACTIONS (4)
  - Bone disorder [Unknown]
  - Diarrhoea [Not Recovered/Not Resolved]
  - Weight decreased [Not Recovered/Not Resolved]
  - Nasopharyngitis [Unknown]
